FAERS Safety Report 16814688 (Version 1)
Quarter: 2019Q3

REPORT INFORMATION
  Report Type: Spontaneous
  Country: US (occurrence: US)
  Receive Date: 20190917
  Receipt Date: 20190917
  Transmission Date: 20191005
  Serious: No
  Sender: FDA-Public Use
  Company Number: US-ACCORD-126098

PATIENT
  Age: 73 Year
  Sex: Male
  Weight: 83.01 kg

DRUGS (9)
  1. GLIMEPIRIDE ACCORD [Suspect]
     Active Substance: GLIMEPIRIDE
     Indication: TYPE 2 DIABETES MELLITUS
     Dosage: 2 TABLETS WITH BREAKFAST, 1 WITH 2 OTHER MEALS IN THE DAY
     Dates: start: 20190424
  2. MIRAPEX [Concomitant]
     Active Substance: PRAMIPEXOLE DIHYDROCHLORIDE
     Indication: RESTLESS LEGS SYNDROME
  3. TELMISARTAN. [Concomitant]
     Active Substance: TELMISARTAN
  4. METFORMIN [Concomitant]
     Active Substance: METFORMIN HYDROCHLORIDE
  5. CYANOCOBALAMIN. [Concomitant]
     Active Substance: CYANOCOBALAMIN
  6. CRESTOR [Concomitant]
     Active Substance: ROSUVASTATIN CALCIUM
  7. LEVOTHYROXINE. [Concomitant]
     Active Substance: LEVOTHYROXINE
  8. VERAPAMIL/VERAPAMIL HYDROCHLORIDE [Concomitant]
     Dosage: TWICE A DAY
  9. MAGNESIUM OXIDE. [Concomitant]
     Active Substance: MAGNESIUM OXIDE

REACTIONS (3)
  - Product odour abnormal [Unknown]
  - Blood glucose increased [Not Recovered/Not Resolved]
  - Product taste abnormal [Unknown]
